FAERS Safety Report 5109166-1 (Version None)
Quarter: 2006Q3

REPORT INFORMATION
  Report Type: 
  Country: None (occurrence: None)
  Receive Date: 20060731
  Receipt Date: 20060505
  Transmission Date: 20061208
  Serious: No
  Sender: FDA-Public Use
  Company Number: 2006PV013416

PATIENT
  Age: 73 Year
  Sex: Female
  Weight: 87.9978 kg

DRUGS (5)
  1. BYETTA [Suspect]
     Indication: DIABETES MELLITUS NON-INSULIN-DEPENDENT
     Dosage: 5 MCG;BID;SC
     Route: 058
     Dates: start: 20060428
  2. NOVOLIN 70/30 [Concomitant]
  3. GLIMEPIRIDE [Concomitant]
  4. IBUPROFEN [Concomitant]
  5. MYLANTA [Concomitant]

REACTIONS (6)
  - ABDOMINAL DISTENSION [None]
  - BOWEL SOUNDS ABNORMAL [None]
  - DECREASED APPETITE [None]
  - NAUSEA [None]
  - VOMITING [None]
  - WEIGHT DECREASED [None]
